FAERS Safety Report 24425991 (Version 2)
Quarter: 2025Q1

REPORT INFORMATION
  Report Type: Spontaneous
  Country: US (occurrence: US)
  Receive Date: 20241011
  Receipt Date: 20250313
  Transmission Date: 20250409
  Serious: No
  Sender: ELI LILLY AND COMPANY
  Company Number: US-ELI_LILLY_AND_COMPANY-US202410006676

PATIENT
  Age: 74 Year
  Sex: Female

DRUGS (4)
  1. FORTEO [Suspect]
     Active Substance: TERIPARATIDE
     Indication: Osteoporosis
     Route: 065
     Dates: start: 202407
  2. FORTEO [Suspect]
     Active Substance: TERIPARATIDE
     Indication: Osteoporosis
     Route: 065
     Dates: start: 202407
  3. FORTEO [Suspect]
     Active Substance: TERIPARATIDE
     Route: 058
  4. FORTEO [Suspect]
     Active Substance: TERIPARATIDE
     Route: 058

REACTIONS (6)
  - Incorrect dose administered [Unknown]
  - Incorrect product administration duration [Recovered/Resolved]
  - Intentional dose omission [Unknown]
  - Somnolence [Unknown]
  - Insomnia [Recovered/Resolved]
  - Injection site pain [Unknown]
